FAERS Safety Report 5676304-1 (Version None)
Quarter: 2008Q1

REPORT INFORMATION
  Report Type: 
  Country: None (occurrence: None)
  Receive Date: 20080321
  Receipt Date: 20080310
  Transmission Date: 20080703
  Serious: Yes (Other)
  Sender: FDA-Public Use
  Company Number: US-PFIZER INC-2008009934

PATIENT
  Sex: Male
  Weight: 72.6 kg

DRUGS (10)
  1. LYRICA [Suspect]
     Indication: HERPES ZOSTER
     Dates: start: 20080103, end: 20080107
  2. LYRICA [Suspect]
     Indication: POST HERPETIC NEURALGIA
  3. NEURONTIN [Suspect]
     Indication: POST HERPETIC NEURALGIA
     Route: 048
  4. NADOLOL [Concomitant]
  5. SPIRONOLACTONE [Concomitant]
  6. LASIX [Concomitant]
  7. VITAMIN B-12 [Concomitant]
  8. FOLIC ACID [Concomitant]
  9. ACIDOPHILUS [Concomitant]
  10. BEANO [Concomitant]

REACTIONS (2)
  - BLOOD PRESSURE INCREASED [None]
  - WEIGHT INCREASED [None]
